FAERS Safety Report 23045865 (Version 1)
Quarter: 2023Q4

REPORT INFORMATION
  Report Type: Spontaneous
  Country: CN (occurrence: CN)
  Receive Date: 20231009
  Receipt Date: 20231009
  Transmission Date: 20240110
  Serious: Yes (Other)
  Sender: FDA-Public Use
  Company Number: CN-009507513-2309CHN009749

PATIENT
  Age: 59 Year
  Sex: Male

DRUGS (2)
  1. INVANZ [Suspect]
     Active Substance: ERTAPENEM SODIUM
     Indication: Medication dilution
     Dosage: 1 GRAM, QD
     Route: 041
     Dates: start: 20230919, end: 20230922
  2. SODIUM CHLORIDE [Concomitant]
     Active Substance: SODIUM CHLORIDE
     Indication: Urinary tract infection
     Dosage: 100 MILLILITER, QD
     Route: 041
     Dates: start: 20230919, end: 20230922

REACTIONS (3)
  - Epilepsy [Recovering/Resolving]
  - Cerebral ischaemia [Unknown]
  - Demyelination [Unknown]

NARRATIVE: CASE EVENT DATE: 20230922
